FAERS Safety Report 7096382-5 (Version None)
Quarter: 2010Q4

REPORT INFORMATION
  Report Type: 
  Country: None (occurrence: None)
  Receive Date: 20101111
  Receipt Date: 20100929
  Transmission Date: 20110411
  Serious: No
  Sender: FDA-Public Use
  Company Number: US-BRISTOL-MYERS SQUIBB COMPANY-15310246

PATIENT

DRUGS (1)
  1. IXEMPRA KIT [Suspect]

REACTIONS (3)
  - ERYTHEMA [None]
  - EXTRAVASATION [None]
  - SKIN IRRITATION [None]
